FAERS Safety Report 9800666 (Version 2)
Quarter: 2014Q1

REPORT INFORMATION
  Report Type: Spontaneous
  Country: US (occurrence: US)
  Receive Date: 20140107
  Receipt Date: 20140210
  Transmission Date: 20141002
  Serious: Yes (Other)
  Sender: FDA-Public Use
  Company Number: US-AMGEN-USASP2014000267

PATIENT
  Sex: Female

DRUGS (5)
  1. XGEVA [Suspect]
     Indication: PROPHYLAXIS
     Dosage: UNK
     Route: 065
     Dates: start: 20131203
  2. FENTANYL [Concomitant]
     Dosage: PATCH
  3. PLAVIX [Concomitant]
  4. ASPIRIN [Concomitant]
  5. SYNTHROID [Concomitant]

REACTIONS (8)
  - Cellulitis [Recovered/Resolved]
  - Herpes zoster [Recovered/Resolved]
  - Contusion [Unknown]
  - Arthralgia [Not Recovered/Not Resolved]
  - Pain in extremity [Recovering/Resolving]
  - Gait disturbance [Unknown]
  - Myalgia [Not Recovered/Not Resolved]
  - Movement disorder [Unknown]
